FAERS Safety Report 11647403 (Version 1)
Quarter: 2015Q4

REPORT INFORMATION
  Report Type: Spontaneous
  Country: US (occurrence: None)
  Receive Date: 20151019
  Receipt Date: 20151019
  Transmission Date: 20160304
  Serious: No
  Sender: FDA-Public Use
  Company Number: None

PATIENT
  Age: 35 Year
  Sex: Male
  Weight: 131.09 kg

DRUGS (1)
  1. PHENTERMINE. [Suspect]
     Active Substance: PHENTERMINE
     Indication: WEIGHT DECREASED
     Route: 048
     Dates: start: 20151015, end: 20151016

REACTIONS (2)
  - Dysuria [None]
  - Micturition urgency [None]

NARRATIVE: CASE EVENT DATE: 20151016
